FAERS Safety Report 6680939-7 (Version None)
Quarter: 2010Q2

REPORT INFORMATION
  Report Type: 
  Country: None (occurrence: None)
  Receive Date: 20100412
  Receipt Date: 20100412
  Transmission Date: 20101027
  Serious: Yes (Life-Threatening, Hospitalization, Other)
  Sender: FDA-Public Use
  Company Number: None

PATIENT
  Sex: Female
  Weight: 81.6475 kg

DRUGS (1)
  1. VERSED [Suspect]

REACTIONS (4)
  - CONTUSION [None]
  - PARADOXICAL DRUG REACTION [None]
  - RESPIRATORY ARREST [None]
  - VICTIM OF CRIME [None]
